FAERS Safety Report 7096709-4 (Version None)
Quarter: 2010Q4

REPORT INFORMATION
  Report Type: 
  Country: None (occurrence: None)
  Receive Date: 20101111
  Receipt Date: 20091013
  Transmission Date: 20110411
  Serious: No
  Sender: FDA-Public Use
  Company Number: US-KINGPHARMUSA00001-K200901275

PATIENT
  Sex: Female
  Weight: 82.54 kg

DRUGS (1)
  1. SKELAXIN [Suspect]
     Indication: PELVIC PAIN
     Dosage: 800 MG, QHS
     Route: 048
     Dates: start: 20091001, end: 20091001

REACTIONS (3)
  - FLUSHING [None]
  - IRRITABILITY [None]
  - RASH [None]
